FAERS Safety Report 4374649-9 (Version None)
Quarter: 2004Q2

REPORT INFORMATION
  Report Type: 
  Country: None (occurrence: None)
  Receive Date: 20040609
  Receipt Date: 20040528
  Transmission Date: 20050107
  Serious: Yes (Hospitalization)
  Sender: FDA-Public Use
  Company Number: GB-GLAXOSMITHKLINE-B0334435A

PATIENT
  Age: 77 Year
  Sex: Male

DRUGS (6)
  1. RANITIDINE [Suspect]
     Dosage: 300MG PER DAY
     Route: 048
     Dates: start: 20040330, end: 20040416
  2. GAVISCON [Concomitant]
     Indication: DYSPEPSIA
     Dosage: 10ML AS REQUIRED
     Route: 065
  3. ASPIRIN [Concomitant]
     Dosage: 75MG PER DAY
     Route: 048
  4. DETRUSITOL [Concomitant]
     Indication: URINARY TRACT DISORDER
     Dosage: 4MG AT NIGHT
     Route: 048
  5. SELENIUM TRACE METAL ADDITIVE [Concomitant]
     Dosage: 1TAB PER DAY
     Route: 048
  6. MULTIVITAMIN SUPPLEMENT [Concomitant]
     Dosage: 1TAB IN THE MORNING
     Route: 065

REACTIONS (3)
  - RASH GENERALISED [None]
  - SWELLING FACE [None]
  - SWOLLEN TONGUE [None]
